FAERS Safety Report 13205241 (Version 4)
Quarter: 2017Q1

REPORT INFORMATION
  Report Type: Spontaneous
  Country: NO (occurrence: NO)
  Receive Date: 20170209
  Receipt Date: 20170328
  Transmission Date: 20170428
  Serious: Yes (Other)
  Sender: FDA-Public Use
  Company Number: NO-PFIZER INC-2017053143

PATIENT
  Age: 66 Year
  Sex: Male

DRUGS (12)
  1. TRAMADOL. [Concomitant]
     Active Substance: TRAMADOL
     Dosage: 50 MG, AS NEEDED
     Route: 048
  2. PARACET [Concomitant]
     Active Substance: ACETAMINOPHEN
     Dosage: 1 G, AS NEEDED
     Route: 048
  3. ELOCON [Concomitant]
     Active Substance: MOMETASONE FUROATE
     Dosage: UNK
     Route: 061
  4. DERMOVATE [Concomitant]
     Active Substance: CLOBETASOL
     Dosage: UNK
     Route: 061
  5. VERAPAMIL [Concomitant]
     Active Substance: VERAPAMIL HYDROCHLORIDE
     Dosage: UNK
     Route: 048
  6. METHOTREXATE SODIUM. [Suspect]
     Active Substance: METHOTREXATE SODIUM
     Indication: PSORIATIC ARTHROPATHY
     Dosage: 25 MG (2.5 MG X 10 TABLETS), WEEKLY (EVERY MONDAY)
     Route: 048
     Dates: start: 2007, end: 201611
  7. FOLSYRE NAF [Concomitant]
     Active Substance: FOLIC ACID
     Dosage: 1 MG, 1X/DAY
     Route: 048
  8. LIPITOR [Concomitant]
     Active Substance: ATORVASTATIN CALCIUM
     Dosage: 40 MG, UNK
  9. BETNOVAT [Concomitant]
     Active Substance: BETAMETHASONE
     Dosage: UNK
     Route: 061
  10. ALBYL-E [Concomitant]
     Active Substance: ASPIRIN\MAGNESIUM OXIDE
     Dosage: 160 MG, UNK
     Route: 065
     Dates: end: 201701
  11. METHOTREXATE SODIUM. [Suspect]
     Active Substance: METHOTREXATE SODIUM
     Indication: OSTEOARTHRITIS
  12. METOPROLOL TARTRATE. [Concomitant]
     Active Substance: METOPROLOL TARTRATE
     Dosage: 25 MG, UNK

REACTIONS (3)
  - Polyneuropathy [Recovering/Resolving]
  - Peroneal nerve palsy [Recovering/Resolving]
  - Atrial fibrillation [Unknown]

NARRATIVE: CASE EVENT DATE: 20160916
